FAERS Safety Report 18340390 (Version 1)
Quarter: 2020Q4

REPORT INFORMATION
  Report Type: Spontaneous
  Country: US (occurrence: US)
  Receive Date: 20201002
  Receipt Date: 20201002
  Transmission Date: 20210113
  Serious: No
  Sender: FDA-Public Use
  Company Number: US-PFIZER INC-2020379922

PATIENT
  Age: 78 Year
  Sex: Female
  Weight: 97.51 kg

DRUGS (1)
  1. IBRANCE [Suspect]
     Active Substance: PALBOCICLIB
     Indication: BREAST CANCER FEMALE
     Dosage: 100 MG, CYCLIC (2 WEEKS ON 2 WEEK OFF )
     Route: 048
     Dates: start: 201901, end: 20200901

REACTIONS (2)
  - White blood cell count decreased [Unknown]
  - Hot flush [Unknown]
